FAERS Safety Report 13456768 (Version 1)
Quarter: 2017Q2

REPORT INFORMATION
  Report Type: Spontaneous
  Country: US (occurrence: US)
  Receive Date: 20170419
  Receipt Date: 20170419
  Transmission Date: 20170830
  Serious: No
  Sender: FDA-Public Use
  Company Number: GXBR2016US002211

PATIENT
  Sex: Female
  Weight: 53.61 kg

DRUGS (2)
  1. DICLOXACILLIN CAPSULES, USP [Suspect]
     Active Substance: DICLOXACILLIN
     Indication: MASTITIS
     Dosage: 500 MG, QID
     Route: 048
  2. MULTI-VIT [Concomitant]
     Active Substance: VITAMINS
     Indication: SUPPLEMENTATION THERAPY
     Dosage: UNK DF, UNK

REACTIONS (2)
  - Exposure during breast feeding [Recovered/Resolved]
  - Product use issue [Recovered/Resolved]
